FAERS Safety Report 24786261 (Version 2)
Quarter: 2025Q1

REPORT INFORMATION
  Report Type: Spontaneous
  Country: NO (occurrence: NO)
  Receive Date: 20241229
  Receipt Date: 20250107
  Transmission Date: 20250408
  Serious: Yes (Life-Threatening, Hospitalization, Other)
  Sender: ORGANON
  Company Number: None

PATIENT
  Age: 80 Year
  Sex: Female

DRUGS (9)
  1. SIMVASTATIN [Interacting]
     Active Substance: SIMVASTATIN
  2. OMNIPAQUE [Interacting]
     Active Substance: IOHEXOL
     Indication: Diagnostic procedure
     Route: 042
     Dates: start: 20241128
  3. PEMBROLIZUMAB [Interacting]
     Active Substance: PEMBROLIZUMAB
     Dates: start: 20241127
  4. PACLITAXEL [Interacting]
     Active Substance: PACLITAXEL
     Route: 042
  5. CARBOPLATIN [Interacting]
     Active Substance: CARBOPLATIN
     Route: 042
  6. PROPRANOLOL HYDROCHLORIDE [Interacting]
     Active Substance: PROPRANOLOL HYDROCHLORIDE
  7. ESCITALOPRAM [Interacting]
     Active Substance: ESCITALOPRAM OXALATE
     Route: 048
  8. ALENDRONATE SODIUM [Interacting]
     Active Substance: ALENDRONATE SODIUM
     Route: 048
  9. RIVOTRIL [Interacting]
     Active Substance: CLONAZEPAM
     Route: 048

REACTIONS (3)
  - Anaphylactic reaction [Recovered/Resolved with Sequelae]
  - Loss of consciousness [Recovered/Resolved with Sequelae]
  - Cardiac arrest [Recovered/Resolved with Sequelae]

NARRATIVE: CASE EVENT DATE: 20241128
